FAERS Safety Report 15296527 (Version 1)
Quarter: 2020Q3

REPORT INFORMATION
  Report Type: Report from Study
  Country: US (occurrence: US)
  Receive Date: 20180820
  Receipt Date: 20180820
  Transmission Date: 20201105
  Serious: Yes (Other)
  Sender: FDA-Public Use
  Company Number: US-JNJFOC-20170504958

PATIENT
  Age: 42 Year
  Sex: Female
  Weight: 54 kg

DRUGS (7)
  1. LIALDA [Concomitant]
     Active Substance: MESALAMINE
     Indication: COLITIS ULCERATIVE
     Route: 048
     Dates: end: 2013
  2. USTEKINUMAB [Suspect]
     Active Substance: USTEKINUMAB
     Route: 058
  3. USTEKINUMAB [Suspect]
     Active Substance: USTEKINUMAB
     Indication: COLITIS ULCERATIVE
     Dosage: Q4W/Q8W, MED KIT NUMBER 9000161
     Route: 058
     Dates: start: 20160415, end: 20170407
  4. PROPOFOL. [Concomitant]
     Active Substance: PROPOFOL
     Indication: SIGMOIDOSCOPY
     Route: 042
     Dates: start: 20170407, end: 20170407
  5. SODIUM PHOSPHATE AND SODIUM BIPHOSPHATE [Concomitant]
     Active Substance: SODIUM PHOSPHATE\SODIUM PHOSPHATE, MONOBASIC, UNSPECIFIED FORM
     Indication: SIGMOIDOSCOPY
     Route: 054
     Dates: start: 20170406, end: 20170407
  6. LIDOCAINE. [Concomitant]
     Active Substance: LIDOCAINE
     Indication: SIGMOIDOSCOPY
     Route: 042
     Dates: start: 20170407
  7. NITROFURANTOIN. [Concomitant]
     Active Substance: NITROFURANTOIN
     Route: 065
     Dates: start: 201704

REACTIONS (1)
  - Malignant melanoma [Recovered/Resolved]

NARRATIVE: CASE EVENT DATE: 20170501
